FAERS Safety Report 6905550-1 (Version None)
Quarter: 2010Q3

REPORT INFORMATION
  Report Type: 
  Country: None (occurrence: None)
  Receive Date: 20100804
  Receipt Date: 20100726
  Transmission Date: 20110219
  Serious: Yes (Other)
  Sender: FDA-Public Use
  Company Number: SE-PFIZER INC-2010093112

PATIENT
  Age: 78 Year
  Sex: Male

DRUGS (6)
  1. LIPITOR [Suspect]
     Dosage: UNK
     Dates: start: 20100501
  2. NORVASC [Concomitant]
     Dosage: UNK
  3. NOVONORM [Concomitant]
     Dosage: UNK
  4. TROMBYL [Concomitant]
     Dosage: UNK
  5. RAMIPRIL [Concomitant]
     Dosage: UNK
  6. EMCONCOR [Concomitant]
     Dosage: UNK

REACTIONS (6)
  - HEADACHE [None]
  - HYPERTENSION [None]
  - MYALGIA [None]
  - NECK PAIN [None]
  - PALPITATIONS [None]
  - PARAESTHESIA [None]
